FAERS Safety Report 8816431 (Version 1)
Quarter: 2012Q4

REPORT INFORMATION
  Report Type: Spontaneous
  Country: NL (occurrence: None)
  Receive Date: 20120927
  Receipt Date: 20120927
  Transmission Date: 20130627
  Serious: Yes (Hospitalization)
  Sender: FDA-Public Use
  Company Number: ACET20120015

PATIENT
  Age: 24 Year
  Sex: Male

DRUGS (2)
  1. ACETAMINOPHEN [Suspect]
     Route: 048
  2. ARIPIPRAZOLE [Concomitant]

REACTIONS (6)
  - Toxicity to various agents [None]
  - Liver injury [None]
  - Overdose [None]
  - Vomiting [None]
  - Nausea [None]
  - Jaundice [None]
